FAERS Safety Report 14722669 (Version 2)
Quarter: 2018Q3

REPORT INFORMATION
  Report Type: Spontaneous
  Country: JP (occurrence: JP)
  Receive Date: 20180405
  Receipt Date: 20180803
  Transmission Date: 20181010
  Serious: Yes (Death, Other)
  Sender: FDA-Public Use
  Company Number: JP-PFIZER INC-2018136376

PATIENT
  Age: 74 Year
  Sex: Male

DRUGS (8)
  1. VOLIBRIS [Suspect]
     Active Substance: AMBRISENTAN
     Indication: PULMONARY ARTERIAL HYPERTENSION
     Dosage: 2.5 MG, 2X/DAY
     Route: 048
     Dates: start: 20121009
  2. BAYASPIRIN [Concomitant]
     Active Substance: ASPIRIN
     Indication: CAROTID ARTERY STENOSIS
     Dosage: 100 MG, 1X/DAY
     Route: 048
  3. JANUVIA [Concomitant]
     Active Substance: SITAGLIPTIN PHOSPHATE
     Indication: DIABETES MELLITUS
     Dosage: 50 MG, 1X/DAY
     Route: 048
  4. AMARYL [Concomitant]
     Active Substance: GLIMEPIRIDE
     Indication: DIABETES MELLITUS
     Dosage: 2 MG, 1X/DAY
     Route: 048
     Dates: start: 20120228
  5. REVATIO [Suspect]
     Active Substance: SILDENAFIL CITRATE
     Indication: PULMONARY ARTERIAL HYPERTENSION
     Dosage: 20 MG, 3X/DAY
     Route: 048
     Dates: start: 20111214
  6. WARFARIN [Concomitant]
     Active Substance: WARFARIN
     Indication: PULMONARY HYPERTENSION
     Dosage: 2 MG, 1X/DAY
     Route: 048
     Dates: start: 20111219
  7. MAGMITT [Concomitant]
     Active Substance: MAGNESIUM OXIDE
     Indication: CONSTIPATION
     Dosage: 500 MG, 3X/DAY
     Route: 048
  8. GASTER [Concomitant]
     Active Substance: FAMOTIDINE
     Indication: GASTRITIS PROPHYLAXIS
     Dosage: 20 MG, 1X/DAY
     Route: 048
     Dates: start: 20111219

REACTIONS (18)
  - Loss of consciousness [Fatal]
  - Pulmonary capillary haemangiomatosis [Fatal]
  - Right ventricular failure [Fatal]
  - Emphysema [Unknown]
  - Diverticulum intestinal [Unknown]
  - Ascites [Unknown]
  - Colon adenoma [Unknown]
  - Obesity [Unknown]
  - Benign prostatic hyperplasia [Unknown]
  - Pulmonary congestion [Unknown]
  - Mucosal hyperaemia [Unknown]
  - Condition aggravated [Fatal]
  - Pulmonary arterial hypertension [Fatal]
  - Renal atrophy [Unknown]
  - Spleen congestion [Unknown]
  - Myocardial infarction [Recovered/Resolved]
  - Nephrosclerosis [Unknown]
  - Renal disorder [Unknown]

NARRATIVE: CASE EVENT DATE: 20140401
